FAERS Safety Report 20884155 (Version 1)
Quarter: 2022Q2

REPORT INFORMATION
  Report Type: Spontaneous
  Country: US (occurrence: US)
  Receive Date: 20220527
  Receipt Date: 20220527
  Transmission Date: 20220721
  Serious: No
  Sender: FDA-Public Use
  Company Number: US-BRISTOL-MYERS SQUIBB COMPANY-2022-048140

PATIENT
  Age: 64 Year
  Sex: Female

DRUGS (1)
  1. REVLIMID [Suspect]
     Active Substance: LENALIDOMIDE
     Indication: Stem cell transplant
     Dosage: TAKE 1 CAPSULE BY MOUTH DAILY FOR 3 WEEKS ON AND 1WEEK OFF AS DIRECTED BY YOUR PHYSICIAN
     Route: 048
     Dates: start: 20200326

REACTIONS (1)
  - Nasopharyngitis [Recovered/Resolved]
